FAERS Safety Report 25276216 (Version 1)
Quarter: 2025Q2

REPORT INFORMATION
  Report Type: Spontaneous
  Country: NL (occurrence: NL)
  Receive Date: 20250507
  Receipt Date: 20250507
  Transmission Date: 20250716
  Serious: Yes (Other)
  Sender: TEVA
  Company Number: None

PATIENT
  Age: 67 Year
  Sex: Female
  Weight: 62 kg

DRUGS (2)
  1. OMEPRAZOLE [Suspect]
     Active Substance: OMEPRAZOLE
     Indication: Prophylaxis
     Dosage: 1 PIECE ONCE A DAY; CAPSULE MSR 10MG / BRAND NAME NOT SPECIFIED
     Route: 048
     Dates: start: 20190519, end: 20250417
  2. ASPIRIN [Concomitant]
     Active Substance: ASPIRIN
     Indication: Product used for unknown indication
     Route: 065

REACTIONS (2)
  - Spinal fracture [Not Recovered/Not Resolved]
  - Osteopenia [Not Recovered/Not Resolved]
